FAERS Safety Report 5499936-2 (Version None)
Quarter: 2007Q4

REPORT INFORMATION
  Report Type: 
  Country: None (occurrence: None)
  Receive Date: 20071026
  Receipt Date: 20071017
  Transmission Date: 20080405
  Serious: Yes (Life-Threatening, Hospitalization)
  Sender: FDA-Public Use
  Company Number: DE-PFIZER INC-2007088073

PATIENT
  Age: 72 Year
  Sex: Male
  Weight: 85 kg

DRUGS (4)
  1. GENOTROPIN [Suspect]
     Indication: HYPOPITUITARISM
     Route: 058
     Dates: start: 20010927, end: 20070601
  2. TAMSULOSIN HCL [Concomitant]
  3. CAPTOPRIL [Concomitant]
     Dates: start: 20020101
  4. EFEROX [Concomitant]
     Dates: start: 20040101

REACTIONS (1)
  - COLON CANCER [None]
